FAERS Safety Report 5380473-0 (Version None)
Quarter: 2007Q3

REPORT INFORMATION
  Report Type: 
  Country: None (occurrence: None)
  Receive Date: 20070706
  Receipt Date: 20070531
  Transmission Date: 20080115
  Serious: No
  Sender: FDA-Public Use
  Company Number: A0653700A

PATIENT
  Age: 63 Year
  Sex: Female

DRUGS (6)
  1. TYKERB [Suspect]
     Indication: BREAST CANCER
     Dosage: 1250MG PER DAY
     Route: 048
     Dates: start: 20070525, end: 20070528
  2. XELODA [Concomitant]
  3. WARFARIN SODIUM [Concomitant]
  4. KEPPRA [Concomitant]
  5. STEROID [Concomitant]
  6. ASPIRIN [Concomitant]

REACTIONS (3)
  - DIARRHOEA [None]
  - MOUTH ULCERATION [None]
  - ORAL PAIN [None]
